FAERS Safety Report 4279612-4 (Version None)
Quarter: 2004Q1

REPORT INFORMATION
  Report Type: 
  Country: None (occurrence: None)
  Receive Date: 20040123
  Receipt Date: 20040114
  Transmission Date: 20041129
  Serious: Yes (Death, Hospitalization)
  Sender: FDA-Public Use
  Company Number: 200314168

PATIENT
  Age: 15 Year
  Sex: Male

DRUGS (6)
  1. BOTOX [Suspect]
     Indication: MUSCLE SPASTICITY
     Dosage: 300 UNITS PRN IM
     Route: 030
     Dates: start: 20031210
  2. NITROUS OXIDE [Concomitant]
  3. SEVOFLURANE [Concomitant]
  4. IBUPROFEN [Concomitant]
  5. DETROL [Concomitant]
  6. DITROPAN [Concomitant]

REACTIONS (10)
  - ASPIRATION [None]
  - CEREBRAL ARTERY EMBOLISM [None]
  - COAGULOPATHY [None]
  - COMA [None]
  - DEEP VEIN THROMBOSIS [None]
  - ELECTROENCEPHALOGRAM ABNORMAL [None]
  - ENDOTRACHEAL INTUBATION COMPLICATION [None]
  - LETHARGY [None]
  - OXYGEN SATURATION DECREASED [None]
  - THROMBOCYTOPENIA [None]
